FAERS Safety Report 10191347 (Version 1)
Quarter: 2014Q2

REPORT INFORMATION
  Report Type: Spontaneous
  Country: BR (occurrence: None)
  Receive Date: 20140521
  Receipt Date: 20140521
  Transmission Date: 20141212
  Serious: Yes (Other)
  Sender: FDA-Public Use
  Company Number: BR-20140052

PATIENT
  Age: 20 Year
  Sex: Male

DRUGS (2)
  1. DOTAREM (GADOTERIC ACID) [Suspect]
     Indication: NUCLEAR MAGNETIC RESONANCE IMAGING
     Route: 042
     Dates: start: 20140503, end: 20140503
  2. SALINE SOLUTION (SODIUM CHLORIDE) [Concomitant]

REACTIONS (1)
  - Cough [None]
